FAERS Safety Report 6826935-8 (Version None)
Quarter: 2010Q3

REPORT INFORMATION
  Report Type: 
  Country: None (occurrence: None)
  Receive Date: 20100709
  Receipt Date: 20100630
  Transmission Date: 20110219
  Serious: Yes (Hospitalization)
  Sender: FDA-Public Use
  Company Number: JP-ROCHE-713291

PATIENT
  Sex: Male

DRUGS (7)
  1. XELODA [Suspect]
     Indication: COLON CANCER RECURRENT
     Dosage: DRUG REPORTED AS XELODA 300
     Route: 048
     Dates: start: 20100507, end: 20100517
  2. AVASTIN [Suspect]
     Indication: COLON CANCER RECURRENT
     Dosage: DOSAGE IS UNCERTAIN
     Route: 041
  3. ELPLAT [Concomitant]
     Dosage: DOSAGE IS UNCERTAIN
     Route: 041
  4. ELPLAT [Concomitant]
     Dosage: DOSAGE IS UNCERTAIN
     Route: 041
  5. FLUOROURACIL [Concomitant]
     Indication: COLON CANCER RECURRENT
     Dosage: FORM: INTRAVENOUS BOLUS; DOSAGE IS UNCERTAIN
     Route: 042
  6. FLUOROURACIL [Concomitant]
     Dosage: FORM: INTRAVENOUS DRIP; DOSAGE IS UNCERTAIN
     Route: 042
  7. CALCIUM LEVOFOLINATE [Concomitant]
     Indication: COLON CANCER RECURRENT
     Dosage: DOSGAE IS UNCERTAIN
     Route: 041

REACTIONS (1)
  - INTERSTITIAL LUNG DISEASE [None]
